FAERS Safety Report 7109054-5 (Version None)
Quarter: 2010Q4

REPORT INFORMATION
  Report Type: 
  Country: None (occurrence: None)
  Receive Date: 20101117
  Receipt Date: 20101109
  Transmission Date: 20110411
  Serious: Yes (Hospitalization)
  Sender: FDA-Public Use
  Company Number: US-US-EMD SERONO, INC.-7027165

PATIENT
  Sex: Female
  Weight: 91 kg

DRUGS (5)
  1. REBIF [Suspect]
     Indication: MULTIPLE SCLEROSIS
     Dates: start: 20100810, end: 20101013
  2. KLONOPIN [Concomitant]
     Indication: ANXIETY
     Dates: end: 20100101
  3. BENADRYL [Concomitant]
  4. TOPAMAX [Concomitant]
     Indication: ANXIETY
     Dates: end: 20100101
  5. OMEPRAZOLE [Concomitant]
     Indication: GASTROOESOPHAGEAL REFLUX DISEASE

REACTIONS (3)
  - DEPRESSED MOOD [None]
  - INTENTIONAL OVERDOSE [None]
  - SUICIDE ATTEMPT [None]
